FAERS Safety Report 9245340 (Version 3)
Quarter: 2013Q2

REPORT INFORMATION
  Report Type: Spontaneous
  Country: US (occurrence: US)
  Receive Date: 20130422
  Receipt Date: 20130522
  Transmission Date: 20140414
  Serious: Yes (Hospitalization, Other)
  Sender: FDA-Public Use
  Company Number: US-ROCHE-1213992

PATIENT
  Age: 35 Year
  Sex: Female

DRUGS (4)
  1. TENECTEPLASE [Suspect]
     Indication: MYOCARDIAL INFARCTION
     Route: 042
     Dates: start: 1990
  2. HEPARIN [Suspect]
     Indication: MYOCARDIAL INFARCTION
     Route: 042
     Dates: start: 1990
  3. CLOPIDOGREL [Suspect]
     Indication: MYOCARDIAL INFARCTION
     Route: 042
     Dates: start: 1990
  4. CLOPIDOGREL [Suspect]
     Route: 048

REACTIONS (5)
  - Coronary artery dissection [Recovered/Resolved with Sequelae]
  - Chest pain [Recovered/Resolved with Sequelae]
  - Disease recurrence [Recovered/Resolved with Sequelae]
  - Ventricular tachycardia [Recovered/Resolved with Sequelae]
  - Ventricular fibrillation [Recovered/Resolved with Sequelae]
